FAERS Safety Report 25723110 (Version 2)
Quarter: 2025Q3

REPORT INFORMATION
  Report Type: Spontaneous
  Country: US (occurrence: US)
  Receive Date: 20250825
  Receipt Date: 20250902
  Transmission Date: 20251020
  Serious: Yes (Life-Threatening, Hospitalization, Other)
  Sender: PFIZER
  Company Number: US-MLMSERVICE-20250813-PI612590-00145-1

PATIENT
  Age: 49 Year
  Sex: Female

DRUGS (6)
  1. FENTANYL CITRATE [Suspect]
     Active Substance: FENTANYL CITRATE
     Indication: Pain management
     Route: 042
     Dates: start: 20250316, end: 20250316
  2. FENTANYL CITRATE [Suspect]
     Active Substance: FENTANYL CITRATE
     Indication: Sedation
     Dates: start: 20250316, end: 20250317
  3. LISINOPRIL [Concomitant]
     Active Substance: LISINOPRIL
     Indication: Hypertension
     Dosage: 10 MG, DAILY
  4. PROPOFOL [Concomitant]
     Active Substance: PROPOFOL
     Indication: Induction of anaesthesia
     Route: 042
     Dates: start: 20250316, end: 20250316
  5. ROCURONIUM [Concomitant]
     Active Substance: ROCURONIUM BROMIDE
     Indication: Anaesthesia
     Route: 042
     Dates: start: 20250316, end: 20250316
  6. SEVOFLURANE [Concomitant]
     Active Substance: SEVOFLURANE
     Indication: Maintenance of anaesthesia
     Dates: start: 20250316, end: 20250316

REACTIONS (3)
  - Chest wall rigidity [Recovering/Resolving]
  - Respiratory acidosis [Recovering/Resolving]
  - Hypoventilation [Recovering/Resolving]

NARRATIVE: CASE EVENT DATE: 20250317
